FAERS Safety Report 5649526-3 (Version None)
Quarter: 2008Q1

REPORT INFORMATION
  Report Type: 
  Country: None (occurrence: None)
  Receive Date: 20080303
  Receipt Date: 20080303
  Transmission Date: 20080703
  Serious: Yes (Hospitalization, Other)
  Sender: FDA-Public Use
  Company Number: None

PATIENT
  Age: 48 Year
  Sex: Female
  Weight: 74.8435 kg

DRUGS (2)
  1. DURAGESIC-25 [Suspect]
     Indication: PAIN
     Dosage: 25MG 1 AT A TIME TRANSDERMAL
     Route: 062
     Dates: start: 20051020, end: 20061024
  2. FENTANYL-25 [Suspect]
     Indication: DYSKINESIA
     Dosage: 25MG 3 AT A TIME TRANSDERMAL
     Route: 062
     Dates: start: 20061024, end: 20080302

REACTIONS (3)
  - DRUG DETOXIFICATION [None]
  - DYSKINESIA [None]
  - IMPAIRED WORK ABILITY [None]
